FAERS Safety Report 6213626-X (Version None)
Quarter: 2009Q2

REPORT INFORMATION
  Report Type: 
  Country: None (occurrence: None)
  Receive Date: 20090603
  Receipt Date: 20090528
  Transmission Date: 20091009
  Serious: Yes (Death)
  Sender: FDA-Public Use
  Company Number: US-GILEAD-2009-0022278

PATIENT
  Sex: Female
  Weight: 55.388 kg

DRUGS (11)
  1. LETAIRIS [Suspect]
     Indication: PULMONARY ARTERIAL HYPERTENSION
     Route: 048
     Dates: start: 20090217
  2. HYDROCHLOROTHIAZIDE [Concomitant]
  3. SPIRIVA [Concomitant]
  4. PROTONIX [Concomitant]
  5. REGLAN [Concomitant]
  6. SYNTHROID [Concomitant]
  7. PREDNISONE [Concomitant]
  8. LIPITOR [Concomitant]
  9. ASPIRIN [Concomitant]
  10. COLCHICINE [Concomitant]
  11. ROCALTROL [Concomitant]

REACTIONS (1)
  - DEATH [None]
